FAERS Safety Report 10265948 (Version 1)
Quarter: 2014Q2

REPORT INFORMATION
  Report Type: Spontaneous
  Country: US (occurrence: US)
  Receive Date: 20140627
  Receipt Date: 20140627
  Transmission Date: 20141212
  Serious: Yes (Other)
  Sender: FDA-Public Use
  Company Number: US-ELI_LILLY_AND_COMPANY-US201406006906

PATIENT
  Sex: Female

DRUGS (2)
  1. HUMALOG LISPRO [Suspect]
     Indication: DIABETES MELLITUS
     Dosage: UNK
     Route: 065
     Dates: start: 2004
  2. LANTUS [Concomitant]

REACTIONS (4)
  - Thyroid cancer [Unknown]
  - Hypoglycaemic seizure [Unknown]
  - Blood glucose increased [Unknown]
  - Drug effect decreased [Unknown]
